FAERS Safety Report 19227338 (Version 1)
Quarter: 2021Q2

REPORT INFORMATION
  Report Type: Spontaneous
  Country: US (occurrence: US)
  Receive Date: 20210507
  Receipt Date: 20210507
  Transmission Date: 20210717
  Serious: Yes (Life-Threatening, Hospitalization, Other)
  Sender: FDA-Public Use
  Company Number: US-AUROBINDO-AUR-APL-2021-018003

PATIENT
  Age: 86 Year
  Sex: Female

DRUGS (5)
  1. AMIODARONE HYDROCHLORIDE. [Suspect]
     Active Substance: AMIODARONE HYDROCHLORIDE
     Dosage: 150 MILLIGRAM
     Route: 041
  2. OXYGEN. [Suspect]
     Active Substance: OXYGEN
     Indication: PRODUCT USED FOR UNKNOWN INDICATION
     Dosage: 4 LITER, INTERMITTENTLY PUT ON UP TO 4L
     Route: 045
  3. AMIODARONE HYDROCHLORIDE. [Suspect]
     Active Substance: AMIODARONE HYDROCHLORIDE
     Indication: ATRIAL FIBRILLATION
     Dosage: 150 MILLIGRAM
     Route: 040
  4. AMIODARONE HYDROCHLORIDE. [Suspect]
     Active Substance: AMIODARONE HYDROCHLORIDE
     Dosage: UNK, SECOND DOSE
     Route: 065
  5. AMIODARONE HYDROCHLORIDE. [Suspect]
     Active Substance: AMIODARONE HYDROCHLORIDE
     Dosage: UNK
     Route: 048

REACTIONS (7)
  - Respiratory failure [Recovering/Resolving]
  - Pulmonary toxicity [Recovering/Resolving]
  - Lung infiltration [Recovering/Resolving]
  - Atrial fibrillation [Unknown]
  - Tachycardia [Unknown]
  - Polyuria [Unknown]
  - Toxicity to various agents [Unknown]
